FAERS Safety Report 4621512-1 (Version None)
Quarter: 2005Q1

REPORT INFORMATION
  Report Type: 
  Country: None (occurrence: None)
  Receive Date: 20050328
  Receipt Date: 20031024
  Transmission Date: 20050727
  Serious: Yes (Death)
  Sender: FDA-Public Use
  Company Number: 9632

PATIENT
  Sex: Female

DRUGS (5)
  1. METHOTREXATE [Suspect]
     Indication: GASTRIC CANCER RECURRENT
     Dosage: 140 MG
     Dates: start: 20030912, end: 20030912
  2. FLUOROURACIL [Concomitant]
  3. HEPARIN [Concomitant]
  4. SODIUM BICARBONATE [Concomitant]
  5. DEXAMETHASONE [Concomitant]

REACTIONS (5)
  - DIPLEGIA [None]
  - HEADACHE [None]
  - HYPOAESTHESIA [None]
  - NECK PAIN [None]
  - PARALYSIS [None]
